FAERS Safety Report 4703915-X (Version None)
Quarter: 2005Q2

REPORT INFORMATION
  Report Type: 
  Country: None (occurrence: None)
  Receive Date: 20050629
  Receipt Date: 20050629
  Transmission Date: 20051028
  Serious: Yes (Death)
  Sender: FDA-Public Use
  Company Number: None

PATIENT
  Age: 55 Year
  Sex: Male
  Weight: 85.6 kg

DRUGS (2)
  1. ETANERCEPT [Suspect]
     Indication: GRAFT VERSUS HOST DISEASE
     Dosage: 25 MG SQ 2X/WEEK  (19 DOSES)
     Route: 058
     Dates: start: 20050417, end: 20050617
  2. . [Concomitant]

REACTIONS (13)
  - CYTOKINE STORM [None]
  - DIARRHOEA [None]
  - ENGRAFTMENT SYNDROME [None]
  - EPSTEIN-BARR VIRUS INFECTION [None]
  - GASTROINTESTINAL DISORDER [None]
  - GRAFT VERSUS HOST DISEASE [None]
  - IMMUNOSUPPRESSION [None]
  - LIVER DISORDER [None]
  - MENTAL STATUS CHANGES [None]
  - METABOLIC ENCEPHALOPATHY [None]
  - NAUSEA [None]
  - RENAL FAILURE ACUTE [None]
  - VOMITING [None]
